FAERS Safety Report 23376975 (Version 1)
Quarter: 2024Q1

REPORT INFORMATION
  Report Type: Spontaneous
  Country: US (occurrence: US)
  Receive Date: 20240108
  Receipt Date: 20240108
  Transmission Date: 20240410
  Serious: No
  Sender: FDA-Public Use
  Company Number: US-SA-SAC20240104001426

PATIENT
  Age: 54 Year
  Sex: Female

DRUGS (2)
  1. DUPIXENT [Suspect]
     Active Substance: DUPILUMAB
     Indication: Wound
     Dosage: 300 MG, QOW
     Route: 058
     Dates: start: 20231101
  2. DUPIXENT [Suspect]
     Active Substance: DUPILUMAB
     Indication: Arthropod bite

REACTIONS (2)
  - Hot flush [Unknown]
  - Drug ineffective for unapproved indication [Unknown]
